FAERS Safety Report 4620385-0 (Version None)
Quarter: 2005Q1

REPORT INFORMATION
  Report Type: 
  Country: None (occurrence: None)
  Receive Date: 20050321
  Receipt Date: 20050321
  Transmission Date: 20050727
  Serious: Yes (Hospitalization)
  Sender: FDA-Public Use
  Company Number: None

PATIENT
  Age: 4 Year
  Sex: Male
  Weight: 19.0511 kg

DRUGS (2)
  1. BACTRIM [Suspect]
     Indication: OTITIS MEDIA
     Dates: start: 20040225, end: 20040318
  2. AUGMENTIN '125' [Suspect]
     Indication: OTITIS MEDIA
     Dates: start: 20040220, end: 20040225

REACTIONS (1)
  - STEVENS-JOHNSON SYNDROME [None]
